FAERS Safety Report 22179816 (Version 1)
Quarter: 2023Q2

REPORT INFORMATION
  Report Type: Other
  Country: GB (occurrence: GB)
  Receive Date: 20230406
  Receipt Date: 20230406
  Transmission Date: 20230722
  Serious: Yes (Other)
  Sender: FDA-Public Use
  Company Number: None

PATIENT
  Sex: Female

DRUGS (3)
  1. DOXYCYCLINE [Interacting]
     Active Substance: DOXYCYCLINE
     Indication: Product used for unknown indication
     Dosage: UNK
     Route: 065
  2. AMITRIPTYLINE [Interacting]
     Active Substance: AMITRIPTYLINE
     Indication: Product used for unknown indication
     Dosage: UNK
     Route: 065
  3. PEPPERMINT OIL [Interacting]
     Active Substance: PEPPERMINT OIL
     Indication: Irritable bowel syndrome
     Dosage: UNK
     Route: 065

REACTIONS (7)
  - Angina pectoris [Recovered/Resolved]
  - Chest discomfort [Recovered/Resolved]
  - Dyspnoea [Recovered/Resolved]
  - Paraesthesia [Recovered/Resolved]
  - Abdominal discomfort [Recovered/Resolved]
  - Hypoaesthesia [Recovered/Resolved]
  - Drug interaction [Unknown]
